FAERS Safety Report 15362593 (Version 1)
Quarter: 2018Q3

REPORT INFORMATION
  Report Type: Spontaneous
  Country: CZ (occurrence: CZ)
  Receive Date: 20180907
  Receipt Date: 20180907
  Transmission Date: 20181010
  Serious: Yes (Hospitalization)
  Sender: FDA-Public Use
  Company Number: CZ-ASTRAZENECA-2018SE68068

PATIENT
  Sex: Female

DRUGS (1)
  1. ROSUCARD [Suspect]
     Active Substance: ROSUVASTATIN CALCIUM
     Indication: DYSLIPIDAEMIA
     Route: 048
     Dates: end: 201803

REACTIONS (10)
  - Rash [Unknown]
  - C-reactive protein increased [Unknown]
  - Palmar erythema [Recovered/Resolved]
  - Pain [Unknown]
  - Vasculitis [Unknown]
  - Oedema [Unknown]
  - Rash papular [Unknown]
  - Rash pustular [Unknown]
  - Pyrexia [Recovered/Resolved]
  - Oedema peripheral [Unknown]
